FAERS Safety Report 6163924-3 (Version None)
Quarter: 2009Q2

REPORT INFORMATION
  Report Type: 
  Country: None (occurrence: None)
  Receive Date: 20090422
  Receipt Date: 20090414
  Transmission Date: 20091009
  Serious: Yes (Disabling, Other)
  Sender: FDA-Public Use
  Company Number: PHEH2008US10899

PATIENT
  Sex: Female
  Weight: 74.83 kg

DRUGS (1)
  1. RECLAST [Suspect]
     Dosage: 5 MG/100ML ONCE YEARLY
     Dates: start: 20080916

REACTIONS (13)
  - ASTHENIA [None]
  - BACK PAIN [None]
  - GAIT DISTURBANCE [None]
  - HYPOAESTHESIA [None]
  - HYPOAESTHESIA ORAL [None]
  - LEUKOCYTOCLASTIC VASCULITIS [None]
  - MICROSCOPIC POLYANGIITIS [None]
  - MUSCLE SPASMS [None]
  - NIGHT SWEATS [None]
  - PAIN [None]
  - PAIN IN EXTREMITY [None]
  - PYREXIA [None]
  - RED BLOOD CELL SEDIMENTATION RATE INCREASED [None]
